FAERS Safety Report 19624202 (Version 1)
Quarter: 2021Q3

REPORT INFORMATION
  Report Type: Spontaneous
  Country: US (occurrence: US)
  Receive Date: 20210729
  Receipt Date: 20210729
  Transmission Date: 20211014
  Serious: Yes (Other)
  Sender: FDA-Public Use
  Company Number: US-NOVEN PHARMACEUTICALS, INC.-2020US005529

PATIENT
  Age: 64 Year
  Sex: Female
  Weight: 56.24 kg

DRUGS (3)
  1. LOSARTAN. [Concomitant]
     Active Substance: LOSARTAN
     Indication: PRODUCT USED FOR UNKNOWN INDICATION
     Dosage: 25 MG
     Route: 048
  2. COMBIPATCH [Suspect]
     Active Substance: ESTRADIOL\NORETHINDRONE ACETATE
     Indication: NIGHT SWEATS
     Dosage: 0.05/0.14 MG (1 TRANSDERMAL PATCH EVERY 3?4 DAY)S
     Route: 062
  3. COMBIPATCH [Suspect]
     Active Substance: ESTRADIOL\NORETHINDRONE ACETATE
     Indication: MENOPAUSAL SYMPTOMS
     Dosage: 0.05/0.14 MG (1 TRANSDERMAL PATCH EVERY 3?4 DAY)S
     Route: 062
     Dates: start: 20200921

REACTIONS (6)
  - Device placement issue [Recovered/Resolved]
  - Device issue [Not Recovered/Not Resolved]
  - Intentional product use issue [Unknown]
  - Adhesive tape use [Unknown]
  - No adverse event [Unknown]
  - Product adhesion issue [Not Recovered/Not Resolved]

NARRATIVE: CASE EVENT DATE: 202009
